FAERS Safety Report 25010371 (Version 1)
Quarter: 2025Q1

REPORT INFORMATION
  Report Type: Spontaneous
  Country: AT (occurrence: AT)
  Receive Date: 20250225
  Receipt Date: 20250225
  Transmission Date: 20250408
  Serious: Yes (Other)
  Sender: MYLAN
  Company Number: AT-AMGEN-AUTSP2025025362

PATIENT
  Age: 69 Year
  Sex: Female

DRUGS (36)
  1. LENALIDOMIDE [Suspect]
     Active Substance: LENALIDOMIDE
     Indication: Plasma cell myeloma
  2. LENALIDOMIDE [Suspect]
     Active Substance: LENALIDOMIDE
     Route: 065
  3. LENALIDOMIDE [Suspect]
     Active Substance: LENALIDOMIDE
     Route: 065
  4. LENALIDOMIDE [Suspect]
     Active Substance: LENALIDOMIDE
  5. POMALIDOMIDE [Suspect]
     Active Substance: POMALIDOMIDE
     Indication: Plasma cell myeloma
  6. POMALIDOMIDE [Suspect]
     Active Substance: POMALIDOMIDE
     Route: 065
  7. POMALIDOMIDE [Suspect]
     Active Substance: POMALIDOMIDE
     Route: 065
  8. POMALIDOMIDE [Suspect]
     Active Substance: POMALIDOMIDE
  9. BORTEZOMIB [Suspect]
     Active Substance: BORTEZOMIB
     Indication: Plasma cell myeloma
  10. BORTEZOMIB [Suspect]
     Active Substance: BORTEZOMIB
     Route: 065
  11. BORTEZOMIB [Suspect]
     Active Substance: BORTEZOMIB
     Route: 065
  12. BORTEZOMIB [Suspect]
     Active Substance: BORTEZOMIB
  13. KYPROLIS [Suspect]
     Active Substance: CARFILZOMIB
     Indication: Plasma cell myeloma
  14. KYPROLIS [Suspect]
     Active Substance: CARFILZOMIB
     Route: 065
  15. KYPROLIS [Suspect]
     Active Substance: CARFILZOMIB
     Route: 065
  16. KYPROLIS [Suspect]
     Active Substance: CARFILZOMIB
  17. DEXAMETHASONE [Suspect]
     Active Substance: DEXAMETHASONE
     Indication: Plasma cell myeloma
  18. DEXAMETHASONE [Suspect]
     Active Substance: DEXAMETHASONE
     Route: 065
  19. DEXAMETHASONE [Suspect]
     Active Substance: DEXAMETHASONE
     Route: 065
  20. DEXAMETHASONE [Suspect]
     Active Substance: DEXAMETHASONE
  21. DARZALEX [Suspect]
     Active Substance: DARATUMUMAB
     Indication: Plasma cell myeloma
  22. DARZALEX [Suspect]
     Active Substance: DARATUMUMAB
     Route: 065
  23. DARZALEX [Suspect]
     Active Substance: DARATUMUMAB
     Route: 065
  24. DARZALEX [Suspect]
     Active Substance: DARATUMUMAB
  25. EMPLICITI [Suspect]
     Active Substance: ELOTUZUMAB
     Indication: Plasma cell myeloma
  26. EMPLICITI [Suspect]
     Active Substance: ELOTUZUMAB
     Route: 065
  27. EMPLICITI [Suspect]
     Active Substance: ELOTUZUMAB
     Route: 065
  28. EMPLICITI [Suspect]
     Active Substance: ELOTUZUMAB
  29. SELINEXOR [Suspect]
     Active Substance: SELINEXOR
     Indication: Plasma cell myeloma
  30. SELINEXOR [Suspect]
     Active Substance: SELINEXOR
     Route: 065
  31. SELINEXOR [Suspect]
     Active Substance: SELINEXOR
     Route: 065
  32. SELINEXOR [Suspect]
     Active Substance: SELINEXOR
  33. TECVAYLI [Suspect]
     Active Substance: TECLISTAMAB-CQYV
     Indication: Plasma cell myeloma
  34. TECVAYLI [Suspect]
     Active Substance: TECLISTAMAB-CQYV
     Route: 065
  35. TECVAYLI [Suspect]
     Active Substance: TECLISTAMAB-CQYV
     Route: 065
  36. TECVAYLI [Suspect]
     Active Substance: TECLISTAMAB-CQYV

REACTIONS (4)
  - Pneumonia [Unknown]
  - Gastrointestinal disorder [Unknown]
  - Muscle spasms [Unknown]
  - Urinary tract infection [Not Recovered/Not Resolved]
